FAERS Safety Report 6476203-1 (Version None)
Quarter: 2009Q4

REPORT INFORMATION
  Report Type: 
  Country: None (occurrence: None)
  Receive Date: 20091206
  Receipt Date: 20090115
  Transmission Date: 20100525
  Serious: No
  Sender: FDA-Public Use
  Company Number: US-AMGEN-KDL328752

PATIENT
  Sex: Female

DRUGS (1)
  1. ENBREL [Suspect]
     Indication: RHEUMATOID ARTHRITIS
     Route: 058

REACTIONS (7)
  - EAR LOBE INFECTION [None]
  - IMPAIRED HEALING [None]
  - INFLAMMATION [None]
  - INSOMNIA [None]
  - LOCALISED INFECTION [None]
  - RHEUMATOID ARTHRITIS [None]
  - STRESS [None]
